FAERS Safety Report 6407451-4 (Version None)
Quarter: 2009Q4

REPORT INFORMATION
  Report Type: 
  Country: None (occurrence: None)
  Receive Date: 20091020
  Receipt Date: 20070531
  Transmission Date: 20100525
  Serious: Yes (Hospitalization)
  Sender: FDA-Public Use
  Company Number: FR-PFIZER INC-2009265067

PATIENT
  Age: 70 Year

DRUGS (7)
  1. IRINOTECAN HCL [Suspect]
     Indication: GASTRIC CANCER
  2. FLUOROURACIL [Suspect]
     Indication: GASTRIC CANCER
  3. FOLINIC ACID [Suspect]
     Indication: GASTRIC CANCER
  4. XATRAL [Concomitant]
     Indication: BENIGN PROSTATIC HYPERPLASIA
     Dosage: 1 DF, 1X/DAY
     Route: 048
  5. ESCITALOPRAM [Concomitant]
     Indication: ANXIETY
     Dosage: 1 DF, 1X/DAY
     Route: 048
  6. INIPOMP [Concomitant]
     Indication: GASTROOESOPHAGEAL REFLUX DISEASE
     Dosage: 1 DF, 1X/DAY
     Route: 048
  7. CLINOMEL [Concomitant]
     Indication: CACHEXIA
     Dosage: UNK
     Route: 042
     Dates: start: 20070109

REACTIONS (4)
  - CACHEXIA [None]
  - DECREASED APPETITE [None]
  - GENERAL PHYSICAL HEALTH DETERIORATION [None]
  - PYREXIA [None]
